FAERS Safety Report 22292937 (Version 1)
Quarter: 2023Q2

REPORT INFORMATION
  Report Type: Spontaneous
  Country: CN (occurrence: CN)
  Receive Date: 20230508
  Receipt Date: 20230508
  Transmission Date: 20230722
  Serious: Yes (Hospitalization)
  Sender: FDA-Public Use
  Company Number: CN-NPI-000011

PATIENT
  Age: 59 Year
  Sex: Female
  Weight: 70 kg

DRUGS (3)
  1. NEOSTIGMINE METHYLSULFATE [Suspect]
     Active Substance: NEOSTIGMINE METHYLSULFATE
     Indication: Tachycardia
     Route: 042
  2. NEOSTIGMINE METHYLSULFATE [Suspect]
     Active Substance: NEOSTIGMINE METHYLSULFATE
     Indication: Tachycardia
     Route: 042
  3. NOREPINEPHRINE [Concomitant]
     Active Substance: NOREPINEPHRINE
     Indication: Tachycardia
     Route: 042

REACTIONS (1)
  - Supraventricular tachycardia [Recovered/Resolved]
